FAERS Safety Report 11265712 (Version 1)
Quarter: 2015Q3

REPORT INFORMATION
  Report Type: Spontaneous
  Country: DE (occurrence: DE)
  Receive Date: 20150713
  Receipt Date: 20150713
  Transmission Date: 20151125
  Serious: Yes (Other)
  Sender: FDA-Public Use
  Company Number: DE-MYLANLABS-2015M1022556

PATIENT

DRUGS (1)
  1. MTX-DURA 7.5 MG/ML INJEKTIONSL?SUNG [Suspect]
     Active Substance: METHOTREXATE SODIUM
     Indication: RHEUMATIC DISORDER
     Dosage: 7.5 MG/ML, QW
     Route: 058
     Dates: start: 201410

REACTIONS (1)
  - Breast cancer recurrent [Not Recovered/Not Resolved]
